FAERS Safety Report 7014978-3 (Version None)
Quarter: 2010Q3

REPORT INFORMATION
  Report Type: 
  Country: None (occurrence: None)
  Receive Date: 20100927
  Receipt Date: 20090811
  Transmission Date: 20110219
  Serious: No
  Sender: FDA-Public Use
  Company Number: US-ASTRAZENECA-2008UW12654

PATIENT
  Age: 65 Year
  Sex: Female
  Weight: 81.2 kg

DRUGS (4)
  1. ARIMIDEX [Suspect]
     Indication: BREAST CANCER
     Dates: start: 20060301
  2. ASPIRIN [Interacting]
  3. NEXIUM [Concomitant]
     Route: 048
  4. BENAZEPRIL HYDROCHLORIDE [Concomitant]

REACTIONS (6)
  - ALOPECIA [None]
  - DRUG INTERACTION [None]
  - FATIGUE [None]
  - HEADACHE [None]
  - MUSCLE ATROPHY [None]
  - VOMITING [None]
